FAERS Safety Report 20448536 (Version 1)
Quarter: 2022Q1

REPORT INFORMATION
  Report Type: Report from Study
  Country: US (occurrence: US)
  Receive Date: 20220209
  Receipt Date: 20220209
  Transmission Date: 20220423
  Serious: No
  Sender: FDA-Public Use
  Company Number: US-NOVARTISTESTPH-NVSC2022US027590

PATIENT
  Weight: 76.2 kg

DRUGS (1)
  1. PROMACTA [Suspect]
     Active Substance: ELTROMBOPAG OLAMINE
     Indication: Leukaemia monocytic
     Dosage: 50 MG (TAKE 1 TABLET BY MOUTH DAILY.ADMINISTER ON EMPTY STOMACH, 1 HOUR BEFORE OR 2 HOURS AFTER A ME
     Route: 048

REACTIONS (1)
  - Drug ineffective [Unknown]
